FAERS Safety Report 4752968-1 (Version None)
Quarter: 2005Q3

REPORT INFORMATION
  Report Type: 
  Country: None (occurrence: None)
  Receive Date: 20050825
  Receipt Date: 20050804
  Transmission Date: 20060218
  Serious: Yes (Death)
  Sender: FDA-Public Use
  Company Number: US_0506118091

PATIENT
  Age: 52 Year
  Sex: Female
  Weight: 68 kg

DRUGS (4)
  1. ZYPREXA [Suspect]
     Dosage: 15 MG
     Dates: start: 19980411
  2. CARBAMAZEPINE [Concomitant]
  3. SERTRALINE HCL [Concomitant]
  4. TRIAMCINOLONE [Concomitant]

REACTIONS (1)
  - DIABETES MELLITUS NON-INSULIN-DEPENDENT [None]
